FAERS Safety Report 5932389-6 (Version None)
Quarter: 2008Q4

REPORT INFORMATION
  Report Type: 
  Country: None (occurrence: None)
  Receive Date: 20081028
  Receipt Date: 20081021
  Transmission Date: 20090506
  Serious: Yes (Life-Threatening)
  Sender: FDA-Public Use
  Company Number: US-JNJFOC-20081004942

PATIENT
  Age: 21 Year
  Sex: Male

DRUGS (2)
  1. ULTRAM [Suspect]
     Indication: EPICONDYLITIS
     Dosage: 40 X 50 MG
     Route: 065
  2. TYLOX [Suspect]
     Indication: DRUG USE FOR UNKNOWN INDICATION
     Route: 065

REACTIONS (3)
  - ALANINE AMINOTRANSFERASE INCREASED [None]
  - GRAND MAL CONVULSION [None]
  - OVERDOSE [None]
